FAERS Safety Report 18869099 (Version 2)
Quarter: 2021Q1

REPORT INFORMATION
  Report Type: Spontaneous
  Country: US (occurrence: US)
  Receive Date: 20210210
  Receipt Date: 20210227
  Transmission Date: 20210420
  Serious: No
  Sender: FDA-Public Use
  Company Number: US-TEVA-2021-US-1873842

PATIENT
  Age: 31 Year

DRUGS (6)
  1. ESCALOPRAM [Concomitant]
  2. ALBUTEROL INHALATION AEROSOL [Suspect]
     Active Substance: ALBUTEROL
  3. ALBUTEROL INHALATION AEROSOL [Suspect]
     Active Substance: ALBUTEROL
  4. ALBUTEROL INHALATION AEROSOL [Suspect]
     Active Substance: ALBUTEROL
     Indication: ASTHMA
     Dosage: 200 PUFFS/DOSE 2 PUFFS
     Route: 065
     Dates: start: 20210112, end: 20210112
  5. ALBUTEROL INHALATION AEROSOL [Suspect]
     Active Substance: ALBUTEROL
  6. AZURETTE [Concomitant]
     Active Substance: DESOGESTREL\ETHINYL ESTRADIOL

REACTIONS (3)
  - Dizziness [Recovered/Resolved]
  - Drug ineffective [Unknown]
  - Device defective [Unknown]
